FAERS Safety Report 10312902 (Version 1)
Quarter: 2014Q3

REPORT INFORMATION
  Report Type: Spontaneous
  Country: US (occurrence: None)
  Receive Date: 20140717
  Receipt Date: 20140717
  Transmission Date: 20150326
  Serious: Yes (Other)
  Sender: FDA-Public Use
  Company Number: None

PATIENT
  Age: 42 Year
  Sex: Male
  Weight: 108.86 kg

DRUGS (1)
  1. METOPROLOL SUCCINATE ER [Suspect]
     Active Substance: METOPROLOL SUCCINATE
     Indication: HYPERTENSION
     Dosage: 1 TABLET TWICE DAILY TAKEN BY MOUTH
     Route: 048
     Dates: start: 20140703, end: 20140715

REACTIONS (3)
  - Product substitution issue [None]
  - Palpitations [None]
  - Blood pressure increased [None]

NARRATIVE: CASE EVENT DATE: 20140703
